FAERS Safety Report 7257568-X (Version None)
Quarter: 2011Q1

REPORT INFORMATION
  Report Type: 
  Country: None (occurrence: None)
  Receive Date: 20110129
  Receipt Date: 20100607
  Transmission Date: 20110831
  Serious: No
  Sender: FDA-Public Use
  Company Number: US-ABBOTT-10P-163-0649158-00

PATIENT
  Sex: Female
  Weight: 100.33 kg

DRUGS (2)
  1. HUMIRA [Suspect]
     Route: 058
     Dates: start: 20100301
  2. HUMIRA [Suspect]
     Indication: PSORIASIS
     Route: 058
     Dates: start: 20090101

REACTIONS (7)
  - SINUSITIS [None]
  - PARANASAL SINUS HYPERSECRETION [None]
  - LIP PAIN [None]
  - GASTROOESOPHAGEAL REFLUX DISEASE [None]
  - SWELLING FACE [None]
  - ORAL INFECTION [None]
  - ACNE [None]
